FAERS Safety Report 19140830 (Version 1)
Quarter: 2021Q2

REPORT INFORMATION
  Report Type: Spontaneous
  Country: CA (occurrence: CA)
  Receive Date: 20210415
  Receipt Date: 20210415
  Transmission Date: 20210717
  Serious: Yes (Other)
  Sender: FDA-Public Use
  Company Number: CA-BAUSCH-BL-2021-012364

PATIENT
  Age: 26 Year
  Sex: Female

DRUGS (2)
  1. MAXIDEX [Concomitant]
     Active Substance: DEXAMETHASONE
     Indication: PRODUCT USED FOR UNKNOWN INDICATION
     Route: 047
  2. LOTEMAX [Suspect]
     Active Substance: LOTEPREDNOL ETABONATE
     Indication: EYE DROP INSTILLATION
     Dosage: SUSPENSION OPHTHALMIC
     Route: 047

REACTIONS (5)
  - Hypersensitivity [Unknown]
  - Paraesthesia [Unknown]
  - Eyelid margin crusting [Unknown]
  - Erythema [Unknown]
  - Eye pain [Unknown]
